FAERS Safety Report 6855426-3 (Version None)
Quarter: 2010Q3

REPORT INFORMATION
  Report Type: 
  Country: None (occurrence: None)
  Receive Date: 20100719
  Receipt Date: 20100712
  Transmission Date: 20110219
  Serious: No
  Sender: FDA-Public Use
  Company Number: US-BIOGENIDEC-2010BI023916

PATIENT
  Sex: Female

DRUGS (1)
  1. TYSABRI [Suspect]
     Indication: MULTIPLE SCLEROSIS
     Route: 042
     Dates: start: 20081204

REACTIONS (7)
  - APHASIA [None]
  - COGNITIVE DISORDER [None]
  - FATIGUE [None]
  - MEMORY IMPAIRMENT [None]
  - READING DISORDER [None]
  - STRESS [None]
  - VISUAL IMPAIRMENT [None]
